FAERS Safety Report 14300796 (Version 2)
Quarter: 2017Q4

REPORT INFORMATION
  Report Type: Spontaneous
  Country: US (occurrence: US)
  Receive Date: 20171219
  Receipt Date: 20171222
  Transmission Date: 20180321
  Serious: Yes (Other)
  Sender: FDA-Public Use
  Company Number: US-009507513-1712USA008439

PATIENT
  Age: 26 Year
  Sex: Female
  Weight: 82.54 kg

DRUGS (1)
  1. NEXPLANON [Suspect]
     Active Substance: ETONOGESTREL
     Indication: CONTRACEPTION
     Dosage: UNK, EVERY 3 YEARS, LEFT ARM
     Route: 059
     Dates: start: 20170418

REACTIONS (7)
  - Depressed mood [Unknown]
  - Lethargy [Unknown]
  - Pregnancy with implant contraceptive [Unknown]
  - Dizziness [Unknown]
  - Nausea [Unknown]
  - Unintended pregnancy [Unknown]
  - Metrorrhagia [Unknown]

NARRATIVE: CASE EVENT DATE: 2017
